FAERS Safety Report 12325335 (Version 4)
Quarter: 2016Q3

REPORT INFORMATION
  Report Type: Report from Study
  Country: TW (occurrence: TW)
  Receive Date: 20160502
  Receipt Date: 20160809
  Transmission Date: 20161109
  Serious: Yes (Life-Threatening, Hospitalization, Other)
  Sender: FDA-Public Use
  Company Number: TW-CELGENEUS-TWN-2016046839

PATIENT
  Age: 71 Year
  Sex: Female
  Weight: 40 kg

DRUGS (62)
  1. NINCORT [Concomitant]
     Indication: MOUTH ULCERATION
  2. LEVOPHED [Concomitant]
     Active Substance: NOREPINEPHRINE BITARTRATE
     Indication: ACUTE KIDNEY INJURY
     Route: 065
     Dates: start: 20160320, end: 20160323
  3. MEPEM [Concomitant]
     Active Substance: MEROPENEM
     Route: 065
     Dates: start: 20160320, end: 20160320
  4. CORDARONE [Concomitant]
     Active Substance: AMIODARONE HYDROCHLORIDE
     Indication: ATRIAL FIBRILLATION
     Route: 065
     Dates: start: 20160320, end: 20160324
  5. SEROQUEL [Concomitant]
     Active Substance: QUETIAPINE FUMARATE
     Route: 065
     Dates: start: 20160323, end: 20160324
  6. BETALOC ZOK [Concomitant]
     Active Substance: METOPROLOL SUCCINATE
     Route: 065
     Dates: start: 20160323, end: 20160324
  7. ULTRACET [Concomitant]
     Active Substance: ACETAMINOPHEN\TRAMADOL HYDROCHLORIDE
     Dosage: 1 TABLET
     Route: 048
     Dates: start: 20160416, end: 20160417
  8. POMALIDOMIDE [Suspect]
     Active Substance: POMALIDOMIDE
     Indication: PLASMA CELL MYELOMA
     Dosage: 4 MILLIGRAM
     Route: 048
     Dates: start: 20160324
  9. ACTEIN [Concomitant]
     Indication: PNEUMONIA
  10. FEBURIC [Concomitant]
     Active Substance: FEBUXOSTAT
     Indication: ACUTE KIDNEY INJURY
  11. ALBIOMIN [Concomitant]
     Indication: HYPOPROTEINAEMIA
     Route: 065
     Dates: start: 20160328, end: 20160401
  12. BETALOC ZOK [Concomitant]
     Active Substance: METOPROLOL SUCCINATE
     Indication: ATRIAL FIBRILLATION
     Dosage: 60 MILLILITER
     Route: 065
     Dates: start: 20160325
  13. COMFFLAM [Concomitant]
     Dosage: 1 PUFF
     Route: 065
     Dates: start: 20160403
  14. DEXAMETHASONE. [Suspect]
     Active Substance: DEXAMETHASONE
     Indication: PLASMA CELL MYELOMA
     Dosage: 1200 MILLIGRAM
     Route: 065
     Dates: start: 20160324, end: 20160414
  15. NINCORT [Concomitant]
     Indication: OROPHARYNGEAL PAIN
     Dosage: NA
     Route: 061
     Dates: start: 20160321
  16. NEXIUM [Concomitant]
     Active Substance: ESOMEPRAZOLE MAGNESIUM
     Indication: GASTROINTESTINAL HAEMORRHAGE
     Route: 048
     Dates: start: 20160322
  17. GASMIN [Concomitant]
     Indication: ABDOMINAL DISTENSION
     Dosage: 5 MILLIGRAM
     Route: 048
     Dates: start: 20160409, end: 20160416
  18. FEBURIC [Concomitant]
     Active Substance: FEBUXOSTAT
     Indication: CHRONIC KIDNEY DISEASE
     Route: 048
     Dates: start: 20160401
  19. RASITOL [Concomitant]
     Dosage: 8 MILLILITER
     Route: 048
     Dates: start: 20160320, end: 20160320
  20. CORDARONE [Concomitant]
     Active Substance: AMIODARONE HYDROCHLORIDE
     Dosage: 6 MILLILITER
     Route: 065
     Dates: start: 20160320, end: 20160321
  21. CALCININ [Concomitant]
     Dosage: 200 MILLIGRAM
     Route: 065
     Dates: start: 20160323, end: 20160324
  22. SMECTA [Concomitant]
     Active Substance: MONTMORILLONITE
     Indication: DIARRHOEA
     Dosage: 6 MILLIGRAM
     Route: 065
     Dates: start: 20160321
  23. DIPHENHYDRAMINE. [Concomitant]
     Active Substance: DIPHENHYDRAMINE
     Indication: PROPHYLAXIS
     Route: 065
     Dates: start: 20160411, end: 20160411
  24. PRIMPERAN [Concomitant]
     Active Substance: METOCLOPRAMIDE HYDROCHLORIDE
     Indication: COUGH
     Route: 065
     Dates: start: 20160409, end: 20160409
  25. MEPEM [Concomitant]
     Active Substance: MEROPENEM
     Indication: PNEUMONIA
     Dosage: 3000 MILLIGRAM
     Route: 065
     Dates: start: 20160321, end: 20160323
  26. MEPEM [Concomitant]
     Active Substance: MEROPENEM
     Route: 065
     Dates: start: 20160322, end: 20160323
  27. MEPEM [Concomitant]
     Active Substance: MEROPENEM
     Route: 065
     Dates: start: 20160321, end: 20160321
  28. MXL [Concomitant]
     Active Substance: MORPHINE SULFATE
     Indication: MUSCULOSKELETAL PAIN
     Route: 048
     Dates: start: 20160104, end: 20160304
  29. BETALOC ZOK [Concomitant]
     Active Substance: METOPROLOL SUCCINATE
     Route: 065
     Dates: start: 20160329, end: 20160414
  30. SYNORID [Concomitant]
     Indication: TUMOUR LYSIS SYNDROME
     Route: 065
     Dates: start: 20160321
  31. PRIMPERAN [Concomitant]
     Active Substance: METOCLOPRAMIDE HYDROCHLORIDE
     Indication: ABDOMINAL DISTENSION
     Route: 065
     Dates: start: 20160409, end: 20160416
  32. PARAMOL [Concomitant]
     Indication: PNEUMONIA
     Route: 065
     Dates: start: 20160320
  33. COROL ORAL RINSE [Concomitant]
     Indication: PROPHYLAXIS
     Route: 065
     Dates: start: 20160320
  34. ROLIKAN [Concomitant]
     Indication: TUMOUR LYSIS SYNDROME
     Dosage: MEQ
     Route: 065
     Dates: start: 20160320, end: 20160323
  35. MEPEM [Concomitant]
     Active Substance: MEROPENEM
     Dosage: 300 MILLIGRAM
     Route: 065
     Dates: start: 20160321, end: 20160322
  36. RASITOL [Concomitant]
     Indication: ACUTE KIDNEY INJURY
     Dosage: 9 GRAM
     Route: 048
     Dates: start: 20160320, end: 20160322
  37. MORPHINE SULPHATE [Concomitant]
     Active Substance: MORPHINE SULFATE
     Indication: MUSCULOSKELETAL PAIN
     Route: 048
     Dates: start: 20160219, end: 20160314
  38. DORMICUM [Concomitant]
     Active Substance: MIDAZOLAM\MIDAZOLAM HYDROCHLORIDE
     Indication: SEDATION
     Route: 048
     Dates: start: 20160320, end: 20160320
  39. DORMICUM [Concomitant]
     Active Substance: MIDAZOLAM\MIDAZOLAM HYDROCHLORIDE
     Route: 048
     Dates: start: 20160417, end: 20160417
  40. SEROQUEL [Concomitant]
     Active Substance: QUETIAPINE FUMARATE
     Indication: DELIRIUM
     Route: 065
     Dates: start: 20160323, end: 20160323
  41. FENTANYL CITRATE. [Concomitant]
     Active Substance: FENTANYL CITRATE
     Indication: MUSCULOSKELETAL PAIN
     Route: 065
     Dates: start: 20160417
  42. DOPAMIN [Concomitant]
     Active Substance: DOPAMINE HYDROCHLORIDE
     Indication: ACUTE KIDNEY INJURY
     Route: 065
     Dates: start: 20160320, end: 20160323
  43. MEPEM [Concomitant]
     Active Substance: MEROPENEM
     Route: 065
     Dates: start: 20160325
  44. ALBIOMIN [Concomitant]
     Route: 065
     Dates: start: 20160320, end: 20160323
  45. FASTURTEC [Concomitant]
     Active Substance: RASBURICASE
     Indication: TUMOUR LYSIS SYNDROME
     Route: 048
     Dates: start: 20160320, end: 20160323
  46. CALCININ [Concomitant]
     Indication: TUMOUR LYSIS SYNDROME
     Route: 065
     Dates: start: 20160324, end: 20160325
  47. INVANZ [Concomitant]
     Active Substance: ERTAPENEM SODIUM
     Dosage: 400 MILLIGRAM
     Route: 065
     Dates: start: 20160323, end: 20160324
  48. FLAGYL [Concomitant]
     Active Substance: METRONIDAZOLE\METRONIDAZOLE HYDROCHLORIDE
     Indication: COLITIS
     Route: 065
     Dates: start: 20160321
  49. KCL [Concomitant]
     Active Substance: POTASSIUM CHLORIDE
     Indication: TUMOUR LYSIS SYNDROME
     Dosage: MEQ
     Route: 065
     Dates: start: 20160321, end: 20160322
  50. ACTEIN [Concomitant]
     Indication: COUGH
     Route: 048
     Dates: start: 20160328
  51. FEBURIC [Concomitant]
     Active Substance: FEBUXOSTAT
     Indication: NEOPLASM
     Dosage: 60 MILLIGRAM
     Route: 048
     Dates: start: 20160320, end: 20160321
  52. CORDARONE [Concomitant]
     Active Substance: AMIODARONE HYDROCHLORIDE
     Dosage: 45 MILLIGRAM
     Route: 065
     Dates: start: 20160321, end: 20160321
  53. INVANZ [Concomitant]
     Active Substance: ERTAPENEM SODIUM
     Indication: PNEUMONIA
     Dosage: 8 MILLIGRAM
     Route: 065
     Dates: start: 20160324, end: 20160325
  54. ULTRACET [Concomitant]
     Active Substance: ACETAMINOPHEN\TRAMADOL HYDROCHLORIDE
     Indication: PAIN
     Dosage: 1 TABLET
     Route: 048
     Dates: start: 20160416, end: 20160416
  55. COMFFLAM [Concomitant]
     Indication: OROPHARYNGEAL PAIN
     Dosage: 1 PUFF
     Route: 065
     Dates: start: 20160402, end: 20160402
  56. ROLIKAN [Concomitant]
     Dosage: 1 BOTTLE
     Route: 065
     Dates: start: 20160320, end: 20160320
  57. RASITOL [Concomitant]
     Route: 048
     Dates: start: 20160321, end: 20160323
  58. MEGEST [Concomitant]
     Indication: DECREASED APPETITE
     Route: 048
     Dates: start: 20160304, end: 20160314
  59. MAGNESIUM SULPHATE [Concomitant]
     Active Substance: MAGNESIUM SULFATE
     Indication: TUMOUR LYSIS SYNDROME
     Dosage: MEQ
     Route: 065
     Dates: start: 20160322, end: 20160322
  60. SMECTA [Concomitant]
     Active Substance: MONTMORILLONITE
     Indication: COLITIS
     Dosage: 540
     Route: 065
     Dates: start: 20160417, end: 20160417
  61. CONCOR [Concomitant]
     Active Substance: BISOPROLOL FUMARATE
     Indication: ATRIAL FIBRILLATION
     Dosage: 1 TABLET
     Route: 048
     Dates: start: 20160414, end: 20160417
  62. PRIMPERAN [Concomitant]
     Active Substance: METOCLOPRAMIDE HYDROCHLORIDE
     Route: 065
     Dates: start: 20160409, end: 20160411

REACTIONS (4)
  - Acute respiratory failure [Recovered/Resolved]
  - Pyrexia [Recovered/Resolved]
  - Pneumonia [Recovered/Resolved]
  - Pneumonia aspiration [Recovered/Resolved]

NARRATIVE: CASE EVENT DATE: 20160416
